FAERS Safety Report 14062776 (Version 1)
Quarter: 2017Q4

REPORT INFORMATION
  Report Type: Spontaneous
  Country: NL (occurrence: NL)
  Receive Date: 20171009
  Receipt Date: 20171009
  Transmission Date: 20180321
  Serious: Yes (Death, Hospitalization)
  Sender: FDA-Public Use
  Company Number: NL-ACTELION-A-CH2017-155247

PATIENT
  Age: 56 Year
  Sex: Female

DRUGS (1)
  1. OPSUMIT [Suspect]
     Active Substance: MACITENTAN
     Indication: PULMONARY ARTERIAL HYPERTENSION
     Dosage: 10 MG, OD
     Route: 048
     Dates: start: 20140505, end: 20170917

REACTIONS (2)
  - Cardiac failure [Unknown]
  - Death [Fatal]

NARRATIVE: CASE EVENT DATE: 20170522
